FAERS Safety Report 5185884-4 (Version None)
Quarter: 2006Q4

REPORT INFORMATION
  Report Type: 
  Country: None (occurrence: None)
  Receive Date: 20061220
  Receipt Date: 20060925
  Transmission Date: 20070319
  Serious: No
  Sender: FDA-Public Use
  Company Number: US-GLAXOSMITHKLINE-A0621281A

PATIENT
  Age: 44 Year
  Sex: Male

DRUGS (1)
  1. NICODERM CQ [Suspect]
     Dates: start: 20060917, end: 20060924

REACTIONS (9)
  - ABNORMAL DREAMS [None]
  - ANOREXIA [None]
  - APPLICATION SITE ERYTHEMA [None]
  - APPLICATION SITE PRURITUS [None]
  - ASTHENIA [None]
  - DIZZINESS [None]
  - NAUSEA [None]
  - NIGHTMARE [None]
  - RETCHING [None]
